FAERS Safety Report 5487725-4 (Version None)
Quarter: 2007Q4

REPORT INFORMATION
  Report Type: 
  Country: None (occurrence: None)
  Receive Date: 20071015
  Receipt Date: 20071015
  Transmission Date: 20080405
  Serious: Yes (Other)
  Sender: FDA-Public Use
  Company Number: None

PATIENT
  Age: 30 Year
  Sex: Female

DRUGS (1)
  1. CELEXA [Suspect]
     Indication: ANXIETY
     Dosage: 20MG HS PO
     Route: 048
     Dates: start: 20070914, end: 20070919

REACTIONS (1)
  - EXTRAPYRAMIDAL DISORDER [None]
